FAERS Safety Report 8268719-2 (Version None)
Quarter: 2012Q1

REPORT INFORMATION
  Report Type: 
  Country: None (occurrence: None)
  Receive Date: 20120327
  Receipt Date: 20100115
  Transmission Date: 20120608
  Serious: Yes (Other)
  Sender: FDA-Public Use
  Company Number: PHEH2010US00857

PATIENT
  Age: 45 Year
  Sex: Female

DRUGS (4)
  1. GLEEVEC [Suspect]
     Dosage: 500 MG, 500 MG
     Dates: start: 20100114
  2. GLEEVEC [Suspect]
     Dosage: 500 MG, 500 MG
  3. NAPROXEN [Concomitant]
  4. ACETAMINOPHEN [Concomitant]

REACTIONS (5)
  - SWELLING FACE [None]
  - PRURITUS GENERALISED [None]
  - LIP SWELLING [None]
  - SWELLING [None]
  - RASH [None]
